FAERS Safety Report 4322961-1 (Version None)
Quarter: 2004Q1

REPORT INFORMATION
  Report Type: 
  Country: None (occurrence: None)
  Receive Date: 20040323
  Receipt Date: 20040323
  Transmission Date: 20041129
  Serious: Yes (Life-Threatening, Hospitalization)
  Sender: FDA-Public Use
  Company Number: None

PATIENT
  Age: 73 Year
  Sex: 0

DRUGS (1)
  1. PROLIXIN [Suspect]
     Indication: SCHIZOPHRENIA
     Dosage: 25 MG IM Q 2 WEEKS
     Route: 030

REACTIONS (3)
  - ASTHENIA [None]
  - FALL [None]
  - INAPPROPRIATE ANTIDIURETIC HORMONE SECRETION [None]
